FAERS Safety Report 12722197 (Version 2)
Quarter: 2016Q3

REPORT INFORMATION
  Report Type: Report from Study
  Country: BE (occurrence: BE)
  Receive Date: 20160907
  Receipt Date: 20160909
  Transmission Date: 20161109
  Serious: Yes (Death, Other)
  Sender: FDA-Public Use
  Company Number: BE-ABBVIE-16P-013-1632323-00

PATIENT
  Age: 77 Year
  Sex: Male

DRUGS (21)
  1. DUODOPA [Suspect]
     Active Substance: CARBIDOPA\LEVODOPA
     Dosage: DOSES CONTINUOUSLY MONITORED AND ADAPTED
     Route: 050
     Dates: start: 20150717, end: 20160225
  2. STALEVO [Concomitant]
     Active Substance: CARBIDOPA\ENTACAPONE\LEVODOPA
     Indication: PARKINSON^S DISEASE
     Dosage: FORM STRENGTH: 200MG/50MG/200MG
     Route: 048
  3. STALEVO [Concomitant]
     Active Substance: CARBIDOPA\ENTACAPONE\LEVODOPA
     Indication: PARKINSON^S DISEASE
     Dosage: FORM STRENGTH: 150MG/37.5MG/200MG
     Route: 048
  4. TENORMIN [Concomitant]
     Active Substance: ATENOLOL
     Indication: PRODUCT USED FOR UNKNOWN INDICATION
  5. DUODOPA [Suspect]
     Active Substance: CARBIDOPA\LEVODOPA
     Dosage: AM= 8 ML; CD= 3.1 ML/H DURING 16 HRS; ED= 2 ML
     Route: 050
     Dates: start: 20160225, end: 20160512
  6. STALEVO [Concomitant]
     Active Substance: CARBIDOPA\ENTACAPONE\LEVODOPA
     Dosage: FORM STRENGTH: 150MG/37.5MG/200MG, 2/DAY AS RESCUE MEDICATION
     Route: 048
  7. EXELON [Concomitant]
     Active Substance: RIVASTIGMINE TARTRATE
     Indication: PRODUCT USED FOR UNKNOWN INDICATION
  8. DIAZEPAM. [Concomitant]
     Active Substance: DIAZEPAM
     Indication: PRODUCT USED FOR UNKNOWN INDICATION
     Dosage: WHEN NEEDED (WITH CRAMPS)
  9. DUODOPA [Suspect]
     Active Substance: CARBIDOPA\LEVODOPA
     Dosage: AM= 8 ML; CD= 3.1 ML/H DURING 16 HRS; ED= 2 ML
     Route: 050
     Dates: start: 20160512, end: 201608
  10. STALEVO [Concomitant]
     Active Substance: CARBIDOPA\ENTACAPONE\LEVODOPA
     Dosage: FORM STRENGTH: 200MG/50MG/200MG, 3/DAY AS RESCUE MEDICATION
     Route: 048
  11. DAFALGAN ODIS [Concomitant]
     Indication: PRODUCT USED FOR UNKNOWN INDICATION
  12. DUODOPA [Suspect]
     Active Substance: CARBIDOPA\LEVODOPA
     Indication: PARKINSON^S DISEASE
     Dosage: AM= 7 ML; CD= 3.1 ML/H DURING 16 HRS; ED= 2 ML
     Route: 050
     Dates: start: 20150713, end: 20150717
  13. DUODOPA [Suspect]
     Active Substance: CARBIDOPA\LEVODOPA
     Dosage: AM= 8 ML; CD= 3.1 ML/H DURING 16 HRS; ED= 2 ML
     Route: 050
     Dates: start: 20160512, end: 20160512
  14. PROLOPA [Concomitant]
     Active Substance: BENSERAZIDE\LEVODOPA
     Indication: PARKINSON^S DISEASE
     Dosage: FORM STRENGTH: 100MG/25MG
     Route: 048
  15. PROLOPA [Concomitant]
     Active Substance: BENSERAZIDE\LEVODOPA
     Dosage: FORM STRENGTH: 100MG/25MG, 2/DAY AS RESCUE MEDICATION
     Route: 048
  16. PROLOPA [Concomitant]
     Active Substance: BENSERAZIDE\LEVODOPA
     Indication: PARKINSON^S DISEASE
     Dosage: FORM STRENGTH: 200MG/50MG?UNIT DOSE = 1/2 TABLET
     Route: 048
  17. ESCITALOPRAM [Concomitant]
     Active Substance: ESCITALOPRAM OXALATE
     Indication: PRODUCT USED FOR UNKNOWN INDICATION
  18. DUODOPA [Suspect]
     Active Substance: CARBIDOPA\LEVODOPA
     Dosage: AM= 8 ML; CD= 3.1 ML/H DURING 16 HRS; ED= 2 ML
     Route: 050
     Dates: start: 201608
  19. PROLOPA [Concomitant]
     Active Substance: BENSERAZIDE\LEVODOPA
     Dosage: FORM STRENGTH: 200MG/50MGUNIT DOSE = 1/2 TABLET, 1/DAY AS RESCUE MEDICATION
     Route: 048
  20. MOVICOL [Concomitant]
     Active Substance: POLYETHYLENE GLYCOL 3350\POTASSIUM CHLORIDE\SODIUM BICARBONATE\SODIUM CHLORIDE
     Indication: PRODUCT USED FOR UNKNOWN INDICATION
  21. ZYLORIC [Concomitant]
     Active Substance: ALLOPURINOL
     Indication: PRODUCT USED FOR UNKNOWN INDICATION

REACTIONS (11)
  - Incorrect route of drug administration [Recovered/Resolved]
  - Keloid scar [Unknown]
  - Stoma site hypergranulation [Unknown]
  - Device occlusion [Recovered/Resolved]
  - Confusional state [Unknown]
  - Impaired quality of life [Fatal]
  - Device alarm issue [Recovered/Resolved]
  - Device dislocation [Unknown]
  - Stoma site erythema [Unknown]
  - Incorrect route of drug administration [Unknown]
  - Restlessness [Unknown]

NARRATIVE: CASE EVENT DATE: 20160512
